FAERS Safety Report 6203499-3 (Version None)
Quarter: 2009Q2

REPORT INFORMATION
  Report Type: 
  Country: None (occurrence: None)
  Receive Date: 20090527
  Receipt Date: 20090514
  Transmission Date: 20091009
  Serious: Yes (Other)
  Sender: FDA-Public Use
  Company Number: PHHY2009JP17254

PATIENT
  Age: 71 Year
  Sex: Male

DRUGS (1)
  1. MIKELAN (NVO) [Suspect]
     Indication: GLAUCOMA
     Route: 047

REACTIONS (2)
  - FALL [None]
  - SUBARACHNOID HAEMORRHAGE [None]
